FAERS Safety Report 22664843 (Version 4)
Quarter: 2023Q4

REPORT INFORMATION
  Report Type: Report from Study
  Country: CA (occurrence: CA)
  Receive Date: 20230703
  Receipt Date: 20231221
  Transmission Date: 20240110
  Serious: Yes (Hospitalization, Other)
  Sender: FDA-Public Use
  Company Number: CA-OTSUKA-2023_015567

PATIENT
  Sex: Female

DRUGS (1)
  1. ARIPIPRAZOLE [Suspect]
     Active Substance: ARIPIPRAZOLE
     Indication: Product used for unknown indication
     Dosage: 400 MG, EVERY 3 WEEKS
     Route: 030

REACTIONS (11)
  - Chronic kidney disease [Recovering/Resolving]
  - Peripheral swelling [Unknown]
  - Blood glucose abnormal [Recovered/Resolved]
  - Anaemia [Unknown]
  - Malaise [Unknown]
  - Depression [Unknown]
  - Decreased appetite [Unknown]
  - Asthenia [Unknown]
  - Vomiting [Unknown]
  - Inappropriate schedule of product administration [Unknown]
  - Product availability issue [Recovered/Resolved]
